FAERS Safety Report 7093437-6 (Version None)
Quarter: 2010Q4

REPORT INFORMATION
  Report Type: 
  Country: None (occurrence: None)
  Receive Date: 20101110
  Receipt Date: 20101029
  Transmission Date: 20110411
  Serious: Yes (Hospitalization, Other)
  Sender: FDA-Public Use
  Company Number: US-AMGEN-KDL430242

PATIENT

DRUGS (13)
  1. NPLATE [Suspect]
     Indication: IDIOPATHIC THROMBOCYTOPENIC PURPURA
     Dosage: 7 A?G/KG, QWK
     Dates: start: 20100805
  2. NPLATE [Suspect]
     Indication: THROMBOCYTOPENIA
     Dosage: 9 A?G/KG, UNK
     Dates: start: 20100916, end: 20100930
  3. NPLATE [Suspect]
     Dosage: 1 A?G/KG, UNK
     Dates: start: 20100513, end: 20100526
  4. NPLATE [Suspect]
     Dosage: 2 A?G/KG, UNK
     Dates: start: 20100527, end: 20100603
  5. NPLATE [Suspect]
     Dosage: 3 A?G/KG, UNK
     Dates: start: 20100610, end: 20100618
  6. NPLATE [Suspect]
     Dosage: 4 A?G/KG, UNK
     Dates: start: 20100625, end: 20100708
  7. NPLATE [Suspect]
     Dosage: 5 A?G/KG, UNK
     Dates: start: 20100713, end: 20100713
  8. NPLATE [Suspect]
     Dosage: 6 A?G/KG, UNK
     Dates: start: 20100723, end: 20100723
  9. NPLATE [Suspect]
     Dosage: 7 A?G/KG, UNK
     Dates: start: 20100805, end: 20100805
  10. NPLATE [Suspect]
     Dosage: 6 A?G/KG, UNK
     Dates: start: 20100819, end: 20100819
  11. NPLATE [Suspect]
     Dosage: 7 A?G/KG, UNK
     Dates: start: 20100826, end: 20100826
  12. NPLATE [Suspect]
     Dosage: 8 A?G/KG, UNK
     Dates: start: 20100902, end: 20100909
  13. NPLATE [Suspect]
     Dosage: 9 A?G/KG, UNK
     Dates: start: 20100916, end: 20100916

REACTIONS (4)
  - DRUG INEFFECTIVE [None]
  - SPERM COUNT ABNORMAL [None]
  - THERAPEUTIC RESPONSE DECREASED [None]
  - THROMBOCYTOPENIA [None]
